FAERS Safety Report 7150548-4 (Version None)
Quarter: 2010Q4

REPORT INFORMATION
  Report Type: 
  Country: None (occurrence: None)
  Receive Date: 20101206
  Receipt Date: 20101206
  Transmission Date: 20110411
  Serious: Yes (Hospitalization)
  Sender: FDA-Public Use
  Company Number: None

PATIENT
  Age: 67 Year
  Sex: Male
  Weight: 87 kg

DRUGS (1)
  1. WARFARIN SODIUM [Suspect]
     Indication: RECTAL HAEMORRHAGE
     Dates: start: 20090618, end: 20100926

REACTIONS (1)
  - HAEMORRHAGE [None]
